FAERS Safety Report 4646806-5 (Version None)
Quarter: 2005Q2

REPORT INFORMATION
  Report Type: 
  Country: None (occurrence: None)
  Receive Date: 20050331
  Receipt Date: 20041202
  Transmission Date: 20051028
  Serious: No
  Sender: FDA-Public Use
  Company Number: 04P-163-0282131-00

PATIENT
  Age: 62 Year
  Sex: Female

DRUGS (12)
  1. HUMIRA [Suspect]
     Indication: RHEUMATOID ARTHRITIS
     Dosage: 40 MG, 1 IN 2 WK, SUBCUTANEOUS
     Route: 058
     Dates: start: 20040901
  2. ATENOLOL [Concomitant]
  3. ENALAPRIL [Concomitant]
  4. SOLOXINE [Concomitant]
  5. FEXOFENADINE HYDROCHLORIDE [Concomitant]
  6. HYDROQUINIDINE [Concomitant]
  7. CELECOXIB [Concomitant]
  8. FLUTICASONE PROPIONATE [Concomitant]
  9. PROVELLA-14 [Concomitant]
  10. SULFASALAZINE [Concomitant]
  11. FUROSEMIDE [Concomitant]
  12. POTASSIUM CHLORIDE [Concomitant]

REACTIONS (2)
  - INJECTION SITE PRURITUS [None]
  - INJECTION SITE URTICARIA [None]
